FAERS Safety Report 21053406 (Version 1)
Quarter: 2022Q3

REPORT INFORMATION
  Report Type: Spontaneous
  Country: US (occurrence: None)
  Receive Date: 20220707
  Receipt Date: 20220707
  Transmission Date: 20221026
  Serious: No
  Sender: FDA-Public Use
  Company Number: None

PATIENT
  Age: 61 Year
  Sex: Male
  Weight: 81 kg

DRUGS (3)
  1. BEBTELOVIMAB [Suspect]
     Active Substance: BEBTELOVIMAB
     Indication: COVID-19
     Dosage: FREQUENCY : ONCE;?
     Route: 040
     Dates: start: 20220706, end: 20220706
  2. SODIUM CHLORIDE [Concomitant]
     Active Substance: SODIUM CHLORIDE
     Dates: start: 20220706, end: 20220706
  3. Acetaminophen 650mg [Concomitant]
     Dates: start: 20220706, end: 20220706

REACTIONS (6)
  - Headache [None]
  - Dizziness [None]
  - Flushing [None]
  - Dyspnoea [None]
  - Cough [None]
  - Injection related reaction [None]

NARRATIVE: CASE EVENT DATE: 20220706
